FAERS Safety Report 4384502-2 (Version None)
Quarter: 2004Q2

REPORT INFORMATION
  Report Type: 
  Country: None (occurrence: None)
  Receive Date: 20040624
  Receipt Date: 20031209
  Transmission Date: 20050107
  Serious: Yes (Hospitalization, Disabling, Other)
  Sender: FDA-Public Use
  Company Number: US-MERCK-0312USA00989

PATIENT
  Age: 62 Year
  Sex: Male
  Weight: 80 kg

DRUGS (7)
  1. LORCET 10/650 [Concomitant]
     Indication: ARTHRITIS
     Route: 065
     Dates: start: 20010914, end: 20020623
  2. HYDROCODONE BITARTRATE [Concomitant]
     Indication: ARTHRITIS
     Route: 065
     Dates: start: 20020210, end: 20020829
  3. IBUPROFEN [Concomitant]
     Route: 065
  4. COZAAR [Concomitant]
     Indication: HYPERTENSION
     Route: 065
  5. VIOXX [Suspect]
     Indication: OSTEOARTHRITIS
     Route: 048
     Dates: start: 20001116, end: 20020623
  6. VIOXX [Suspect]
     Indication: SPONDYLOSIS
     Route: 048
     Dates: start: 20001116, end: 20020623
  7. AMBIEN [Concomitant]
     Route: 065

REACTIONS (29)
  - ANXIETY [None]
  - AORTIC VALVE SCLEROSIS [None]
  - BLOOD GLUCOSE INCREASED [None]
  - CEREBROVASCULAR ACCIDENT [None]
  - DELUSION [None]
  - DEPRESSION [None]
  - DIZZINESS [None]
  - EMOTIONAL DISTRESS [None]
  - FATIGUE [None]
  - FEELING ABNORMAL [None]
  - GLUCOSE TOLERANCE IMPAIRED [None]
  - HALLUCINATION [None]
  - HERNIA [None]
  - HYPERLIPIDAEMIA [None]
  - HYPERTENSION [None]
  - INSOMNIA [None]
  - LOW DENSITY LIPOPROTEIN INCREASED [None]
  - MALE SEXUAL DYSFUNCTION [None]
  - MITRAL VALVE INCOMPETENCE [None]
  - NEUROPATHY [None]
  - NOCTURIA [None]
  - OEDEMA PERIPHERAL [None]
  - PANIC ATTACK [None]
  - PERIARTHRITIS [None]
  - SEDATION [None]
  - SOMNOLENCE [None]
  - STRESS SYMPTOMS [None]
  - VARICOSE VEIN [None]
  - VENTRICULAR HYPERTROPHY [None]
